FAERS Safety Report 18353319 (Version 1)
Quarter: 2020Q4

REPORT INFORMATION
  Report Type: Spontaneous
  Country: US (occurrence: US)
  Receive Date: 20201006
  Receipt Date: 20201006
  Transmission Date: 20210114
  Serious: No
  Sender: FDA-Public Use
  Company Number: US-ALLERGAN-2018581US

PATIENT
  Sex: Female

DRUGS (4)
  1. COLACE [Concomitant]
     Active Substance: DOCUSATE SODIUM
     Indication: CONSTIPATION
     Dosage: UNK
  2. SENNOKOTT [Concomitant]
     Active Substance: SENNOSIDES A AND B
     Indication: CONSTIPATION
  3. LINZESS [Suspect]
     Active Substance: LINACLOTIDE
     Indication: IRRITABLE BOWEL SYNDROME
     Dosage: UNK
  4. EXLAX [Concomitant]
     Indication: CONSTIPATION

REACTIONS (3)
  - Therapy change [Unknown]
  - Inability to afford medication [Unknown]
  - Therapeutic response decreased [Unknown]
